FAERS Safety Report 20218703 (Version 1)
Quarter: 2021Q4

REPORT INFORMATION
  Report Type: Spontaneous
  Country: CN (occurrence: CN)
  Receive Date: 20211222
  Receipt Date: 20211222
  Transmission Date: 20220304
  Serious: Yes (Hospitalization)
  Sender: FDA-Public Use
  Company Number: CN-CELGENE-CHN-20211206084

PATIENT
  Age: 66 Year
  Sex: Male
  Weight: 50 kg

DRUGS (20)
  1. ABRAXANE [Suspect]
     Active Substance: PACLITAXEL
     Indication: Lung adenocarcinoma
     Route: 041
     Dates: start: 20210623
  2. NIVOLUMAB [Suspect]
     Active Substance: NIVOLUMAB
     Indication: Lung adenocarcinoma
     Dosage: 140 MILLIGRAM
     Route: 041
     Dates: start: 20210909, end: 20210909
  3. CARBOPLATIN [Suspect]
     Active Substance: CARBOPLATIN
     Indication: Product used for unknown indication
     Dosage: 23.8095 MILLIGRAM
     Route: 065
     Dates: start: 20210625
  4. CARBOPLATIN [Suspect]
     Active Substance: CARBOPLATIN
     Dosage: 23.8095 MILLIGRAM
     Route: 065
     Dates: start: 20210721
  5. CARBOPLATIN [Suspect]
     Active Substance: CARBOPLATIN
     Dosage: 23.8095 MILLIGRAM
     Route: 065
     Dates: start: 20210818
  6. CARBOPLATIN [Suspect]
     Active Substance: CARBOPLATIN
     Dosage: 23.8095 MILLIGRAM
     Route: 065
     Dates: start: 20210919, end: 20210919
  7. CARBOPLATIN [Suspect]
     Active Substance: CARBOPLATIN
     Dosage: 23.8095 MILLIGRAM
     Route: 065
     Dates: start: 20210922
  8. CARBOPLATIN [Suspect]
     Active Substance: CARBOPLATIN
     Dosage: 23.8095 MILLIGRAM
     Route: 065
     Dates: start: 20211017
  9. CARBOPLATIN [Suspect]
     Active Substance: CARBOPLATIN
     Dosage: 23.8095 MILLIGRAM
     Route: 065
     Dates: start: 20211118
  10. CARBOPLATIN [Suspect]
     Active Substance: CARBOPLATIN
     Dosage: 23.8095 MILLIGRAM
     Route: 065
     Dates: start: 20211216
  11. CARBOPLATIN [Suspect]
     Active Substance: CARBOPLATIN
     Dosage: 23.8095 MILLIGRAM
     Route: 065
     Dates: start: 20210122
  12. BEVACIZUMAB [Suspect]
     Active Substance: BEVACIZUMAB
     Indication: Lung adenocarcinoma
     Route: 065
     Dates: start: 20210623
  13. PEMETREXED [Suspect]
     Active Substance: PEMETREXED
     Indication: Product used for unknown indication
     Route: 065
     Dates: start: 20210625
  14. PEMETREXED [Suspect]
     Active Substance: PEMETREXED
     Route: 065
     Dates: start: 20210721
  15. PEMETREXED [Suspect]
     Active Substance: PEMETREXED
     Route: 065
     Dates: start: 20210818
  16. PEMETREXED [Suspect]
     Active Substance: PEMETREXED
     Route: 065
     Dates: start: 20210922
  17. PEMETREXED [Suspect]
     Active Substance: PEMETREXED
     Route: 065
     Dates: start: 20211017
  18. PEMETREXED [Suspect]
     Active Substance: PEMETREXED
     Route: 065
     Dates: start: 20211118
  19. PEMETREXED [Suspect]
     Active Substance: PEMETREXED
     Dosage: 800 MILLIGRAM
     Route: 065
     Dates: start: 20211216
  20. PEMETREXED [Suspect]
     Active Substance: PEMETREXED
     Dosage: 800 MILLIGRAM
     Route: 065
     Dates: start: 20210122

REACTIONS (1)
  - Immune-mediated myocarditis [Recovering/Resolving]

NARRATIVE: CASE EVENT DATE: 20210930
